FAERS Safety Report 5076878-8 (Version None)
Quarter: 2006Q3

REPORT INFORMATION
  Report Type: 
  Country: None (occurrence: None)
  Receive Date: 20060810
  Receipt Date: 20030331
  Transmission Date: 20061208
  Serious: Yes (Hospitalization, Other)
  Sender: FDA-Public Use
  Company Number: PHNU2003DE01499

PATIENT
  Sex: Male

DRUGS (4)
  1. PROVASIN TAB [Suspect]
     Route: 064
     Dates: end: 20020615
  2. VOLMAC [Concomitant]
     Route: 064
     Dates: end: 20020619
  3. BERODUAL [Concomitant]
     Route: 064
     Dates: end: 20020619
  4. THEOPHYLLINE [Concomitant]
     Route: 064

REACTIONS (11)
  - ATRIAL SEPTAL DEFECT [None]
  - CRYPTORCHISM [None]
  - DEVELOPMENTAL DELAY [None]
  - DRUG EXPOSURE DURING PREGNANCY [None]
  - HEART DISEASE CONGENITAL [None]
  - HYPOGLYCAEMIA [None]
  - HYPONATRAEMIA [None]
  - PATENT DUCTUS ARTERIOSUS [None]
  - PREMATURE BABY [None]
  - PULMONARY VALVE STENOSIS CONGENITAL [None]
  - SMALL FOR DATES BABY [None]
